FAERS Safety Report 10170605 (Version 1)
Quarter: 2014Q2

REPORT INFORMATION
  Report Type: Spontaneous
  Country: US (occurrence: US)
  Receive Date: 20140513
  Receipt Date: 20140513
  Transmission Date: 20141212
  Serious: Yes (Other)
  Sender: FDA-Public Use
  Company Number: US-ROCHE-1400842

PATIENT
  Sex: Female

DRUGS (2)
  1. XELODA [Suspect]
     Indication: COLON CANCER STAGE IV
     Route: 048
     Dates: start: 20140226, end: 20140513
  2. METHYLPHENIDATE [Concomitant]
     Route: 048

REACTIONS (1)
  - Disease progression [Unknown]
